FAERS Safety Report 5234314-2 (Version None)
Quarter: 2007Q1

REPORT INFORMATION
  Report Type: 
  Country: None (occurrence: None)
  Receive Date: 20070207
  Receipt Date: 20070122
  Transmission Date: 20070707
  Serious: Yes (Other)
  Sender: FDA-Public Use
  Company Number: 2007PV028825

PATIENT
  Age: 70 Year
  Sex: Male

DRUGS (3)
  1. BYETTA [Suspect]
     Indication: DRUG USE FOR UNKNOWN INDICATION
     Dosage: 5 MCG; SC
     Route: 058
     Dates: start: 20060401, end: 20061201
  2. PRECOSE [Concomitant]
  3. METFORMIN HCL [Concomitant]

REACTIONS (3)
  - COUGH [None]
  - LUNG NEOPLASM [None]
  - WEIGHT DECREASED [None]
